FAERS Safety Report 7549150-1 (Version None)
Quarter: 2011Q2

REPORT INFORMATION
  Report Type: 
  Country: None (occurrence: None)
  Receive Date: 20110615
  Receipt Date: 20110601
  Transmission Date: 20111010
  Serious: Yes (Hospitalization)
  Sender: FDA-Public Use
  Company Number: PHHY2011US47538

PATIENT
  Sex: Female

DRUGS (1)
  1. RECLAST [Suspect]
     Indication: OSTEOPOROSIS
     Dosage: 5 MG, ANUAL
     Route: 042
     Dates: start: 20101201

REACTIONS (3)
  - RADIUS FRACTURE [None]
  - ULNA FRACTURE [None]
  - FALL [None]
